FAERS Safety Report 10483918 (Version 2)
Quarter: 2015Q1

REPORT INFORMATION
  Report Type: Spontaneous
  Country: US (occurrence: None)
  Receive Date: 20140926
  Receipt Date: 20150128
  Transmission Date: 20150720
  Serious: Yes (Death)
  Sender: FDA-Public Use
  Company Number: INS201409-000198

PATIENT
  Age: 57 Year
  Sex: Female

DRUGS (1)
  1. SUBSYS [Suspect]
     Active Substance: FENTANYL
     Indication: BREAKTHROUGH PAIN
     Route: 060

REACTIONS (8)
  - Metastases to bone [None]
  - Breast cancer metastatic [None]
  - Metastases to adrenals [None]
  - Metastases to liver [None]
  - Metastases to kidney [None]
  - Metastatic neoplasm [None]
  - Metastases to abdominal cavity [None]
  - Metastases to muscle [None]

NARRATIVE: CASE EVENT DATE: 20140820
